FAERS Safety Report 6963439-6 (Version None)
Quarter: 2010Q3

REPORT INFORMATION
  Report Type: 
  Country: None (occurrence: None)
  Receive Date: 20100902
  Receipt Date: 20100824
  Transmission Date: 20110219
  Serious: Yes (Life-Threatening, Hospitalization)
  Sender: FDA-Public Use
  Company Number: B0665791A

PATIENT
  Sex: Male

DRUGS (9)
  1. VALTREX [Suspect]
     Indication: HERPES ZOSTER
     Dosage: 3000MG PER DAY
     Route: 048
     Dates: start: 20100714, end: 20100714
  2. DOXAZOSIN MESYLATE [Concomitant]
     Indication: HYPERTENSION
     Dosage: 2MG PER DAY
     Route: 048
  3. RENIVACE [Concomitant]
     Indication: HYPERTENSION
     Dosage: 5MG PER DAY
     Route: 048
  4. DEPAS [Concomitant]
     Indication: PRODUCT USED FOR UNKNOWN INDICATION
     Route: 048
  5. ADALAT CC [Concomitant]
     Indication: HYPERTENSION
     Dosage: 80MG PER DAY
     Route: 048
  6. OLMESARTAN MEDOXOMIL [Concomitant]
     Indication: HYPERTENSION
     Dosage: 40MG PER DAY
     Route: 048
  7. RENAGEL [Concomitant]
     Indication: BLOOD PHOSPHORUS INCREASED
     Dosage: 3750MG PER DAY
     Route: 048
  8. TANKARU [Concomitant]
     Indication: BLOOD PHOSPHORUS INCREASED
     Dosage: 1500MG PER DAY
     Route: 048
  9. REGULAR INSULIN [Concomitant]
     Route: 058

REACTIONS (10)
  - ALTERED STATE OF CONSCIOUSNESS [None]
  - BLOOD GLUCOSE ABNORMAL [None]
  - BLOOD PRESSURE INADEQUATELY CONTROLLED [None]
  - BLOOD PRESSURE INCREASED [None]
  - CHROMATOPSIA [None]
  - CONVULSION [None]
  - DECUBITUS ULCER [None]
  - DELIRIUM [None]
  - DYSKINESIA [None]
  - XANTHOPSIA [None]
